FAERS Safety Report 5735925-8 (Version None)
Quarter: 2008Q2

REPORT INFORMATION
  Report Type: 
  Country: None (occurrence: None)
  Receive Date: 20080509
  Receipt Date: 20080505
  Transmission Date: 20081010
  Serious: Yes (Death)
  Sender: FDA-Public Use
  Company Number: 2008SP008310

PATIENT
  Sex: Female

DRUGS (1)
  1. PROVENTIL  HFA  ( ALBUTEROL  SULFATE ( INHALATION ) ) [Suspect]
     Indication: ASTHMA
     Dosage: PO
     Route: 048

REACTIONS (2)
  - ASTHMA [None]
  - TREATMENT NONCOMPLIANCE [None]
